FAERS Safety Report 17571494 (Version 1)
Quarter: 2020Q1

REPORT INFORMATION
  Report Type: Spontaneous
  Country: US (occurrence: US)
  Receive Date: 20200323
  Receipt Date: 20200323
  Transmission Date: 20200409
  Serious: No
  Sender: FDA-Public Use
  Company Number: US-ELI_LILLY_AND_COMPANY-US202003009476

PATIENT
  Sex: Female

DRUGS (2)
  1. HUMALOG [Suspect]
     Active Substance: INSULIN LISPRO
     Indication: PRODUCT USED FOR UNKNOWN INDICATION
     Dosage: 80 U, DAILY
     Dates: start: 2000
  2. IRON [Suspect]
     Active Substance: IRON
     Indication: BLOOD IRON DECREASED
     Dosage: UNK UNK, UNKNOWN
     Route: 065

REACTIONS (3)
  - Throat irritation [Unknown]
  - Oropharyngeal pain [Unknown]
  - Blood iron decreased [Unknown]
